FAERS Safety Report 16197738 (Version 2)
Quarter: 2019Q2

REPORT INFORMATION
  Report Type: Spontaneous
  Country: BE (occurrence: BE)
  Receive Date: 20190415
  Receipt Date: 20190417
  Transmission Date: 20190711
  Serious: Yes (Other)
  Sender: FDA-Public Use
  Company Number: BE-PFIZER INC-2019156719

PATIENT
  Age: 59 Year
  Sex: Female
  Weight: 74 kg

DRUGS (9)
  1. KEYTRUDA [Suspect]
     Active Substance: PEMBROLIZUMAB
     Dosage: UNK
  2. BRILIQUE [Suspect]
     Active Substance: TICAGRELOR
     Dosage: 180 MG, ONCE DAILY
     Route: 048
  3. BEFACT [CYANOCOBALAMIN;PYRIDOXINE HYDROCHLORIDE;RIBOFLAVIN;THIAMINE MO [Suspect]
     Active Substance: CYANOCOBALAMIN\PYRIDOXINE\RIBOFLAVIN\THIAMINE
     Dosage: 2 DF, ONCE DAILY
     Route: 048
  4. HIRUDOID [Suspect]
     Active Substance: GLYCOSAMINOGLYCANS
     Dosage: UNK
     Route: 003
  5. LIPITOR [Suspect]
     Active Substance: ATORVASTATIN CALCIUM
     Dosage: 80 MG, ONCE DAILY
  6. XANAX [Suspect]
     Active Substance: ALPRAZOLAM
     Dosage: 1 MG, DAILY (ONE-HALF DF TWICE DAILY AND 1 DF ONCE DAILY)
     Route: 048
  7. PANTOMED (PANTOPRAZOLE SODIUM SESQUIHYDRATE) [Suspect]
     Active Substance: PANTOPRAZOLE SODIUM
     Dosage: 40 MG, ONCE DAILY
     Route: 048
  8. EMCONCOR [Suspect]
     Active Substance: BISOPROLOL FUMARATE
     Dosage: 2.5 MG, ONCE DAILY
     Route: 048
  9. CARDIOASPIRINE [Suspect]
     Active Substance: ASPIRIN
     Dosage: 100 MG, ONCE DAILY
     Route: 048

REACTIONS (5)
  - Pruritus generalised [Unknown]
  - Blood pressure decreased [Unknown]
  - Swollen tongue [Unknown]
  - Dyspnoea [Unknown]
  - Urticaria [Unknown]
